FAERS Safety Report 8138358-2 (Version None)
Quarter: 2012Q1

REPORT INFORMATION
  Report Type: 
  Country: None (occurrence: None)
  Receive Date: 20120215
  Receipt Date: 20111121
  Transmission Date: 20120608
  Serious: No
  Sender: FDA-Public Use
  Company Number: US-SANOFI-AVENTIS-2011SA076816

PATIENT
  Age: 73 Year
  Sex: Male

DRUGS (3)
  1. METFORMIN HCL [Suspect]
     Route: 065
  2. GLYBURIDE [Suspect]
     Route: 065
  3. VICTOZA [Suspect]
     Route: 065

REACTIONS (4)
  - ERUCTATION [None]
  - BLOOD GLUCOSE DECREASED [None]
  - FLATULENCE [None]
  - DYSPEPSIA [None]
